FAERS Safety Report 9791211 (Version 1)
Quarter: 2013Q4

REPORT INFORMATION
  Report Type: Spontaneous
  Country: IT (occurrence: IT)
  Receive Date: 20131231
  Receipt Date: 20131231
  Transmission Date: 20140711
  Serious: Yes (Hospitalization)
  Sender: FDA-Public Use
  Company Number: IT-ROCHE-1325342

PATIENT
  Age: 85 Year
  Sex: Male

DRUGS (2)
  1. XELODA [Suspect]
     Indication: ADENOCARCINOMA OF COLON
     Route: 048
     Dates: start: 20121001, end: 20130401
  2. LEVOFLOXACIN [Suspect]
     Indication: HYPERPYREXIA
     Route: 048
     Dates: start: 20130503, end: 20130508

REACTIONS (3)
  - Asthenia [Recovering/Resolving]
  - Pulmonary oedema [Recovering/Resolving]
  - Renal failure [Recovering/Resolving]
